FAERS Safety Report 4646661-3 (Version None)
Quarter: 2005Q2

REPORT INFORMATION
  Report Type: 
  Country: None (occurrence: None)
  Receive Date: 20050425
  Receipt Date: 20050412
  Transmission Date: 20051028
  Serious: Yes (Hospitalization)
  Sender: FDA-Public Use
  Company Number: 05P-062-0296869-00

PATIENT
  Age: 39 Year
  Sex: Female
  Weight: 73 kg

DRUGS (5)
  1. SEVORANE LIQUID FOR INHALATION (ULTANE LIQUID FOR INHALATION) (SEVOFLU [Suspect]
     Indication: ANAESTHESIA
     Dosage: ABOUT 2.5 HOURS, INHALATION
     Route: 055
     Dates: start: 20050322, end: 20050322
  2. SEVORANE LIQUID FOR INHALATION (ULTANE LIQUID FOR INHALATION) (SEVOFLU [Suspect]
     Indication: OVARIAN CANCER
     Dosage: ABOUT 2.5 HOURS, INHALATION
     Route: 055
     Dates: start: 20050322, end: 20050322
  3. SEVORANE LIQUID FOR INHALATION (ULTANE LIQUID FOR INHALATION) (SEVOFLU [Suspect]
     Indication: OVARIAN OPERATION
     Dosage: ABOUT 2.5 HOURS, INHALATION
     Route: 055
     Dates: start: 20050322, end: 20050322
  4. PERFALGAN [Concomitant]
  5. PROPOFOL [Concomitant]

REACTIONS (5)
  - ASPARTATE AMINOTRANSFERASE INCREASED [None]
  - BLOOD LACTATE DEHYDROGENASE INCREASED [None]
  - GAMMA-GLUTAMYLTRANSFERASE INCREASED [None]
  - POST PROCEDURAL COMPLICATION [None]
  - PROTHROMBIN TIME PROLONGED [None]
